FAERS Safety Report 5251631-0 (Version None)
Quarter: 2007Q1

REPORT INFORMATION
  Report Type: 
  Country: None (occurrence: None)
  Receive Date: 20070228
  Receipt Date: 20060928
  Transmission Date: 20070707
  Serious: Yes (Hospitalization, Disabling)
  Sender: FDA-Public Use
  Company Number: US-GLAXOSMITHKLINE-A0621803A

PATIENT
  Sex: Female

DRUGS (8)
  1. LAMICTAL [Suspect]
     Indication: BIPOLAR DISORDER
     Dosage: 150MG TWICE PER DAY
     Route: 048
     Dates: start: 20051201, end: 20060727
  2. ACETAMINOPHEN [Concomitant]
  3. MYLANTA [Concomitant]
  4. LORAZEPAM [Concomitant]
  5. COGENTIN [Concomitant]
  6. DEXAMETHASONE [Concomitant]
  7. SEROQUEL [Concomitant]
  8. ZYPREXA [Concomitant]

REACTIONS (2)
  - MOUTH ULCERATION [None]
  - WEIGHT DECREASED [None]
